FAERS Safety Report 7997560-0 (Version None)
Quarter: 2011Q4

REPORT INFORMATION
  Report Type: 
  Country: None (occurrence: None)
  Receive Date: 20111221
  Receipt Date: 20111214
  Transmission Date: 20120403
  Serious: Yes (Other)
  Sender: FDA-Public Use
  Company Number: US-RB-031880-11

PATIENT
  Age: 23 Year
  Sex: Male

DRUGS (2)
  1. LORATADINE [Concomitant]
     Indication: HYPERSENSITIVITY
  2. MUCINEX FAST MAX ADULT COLD FLU SORE THROAT [Suspect]
     Indication: PRODUCT USED FOR UNKNOWN INDICATION
     Route: 048

REACTIONS (7)
  - LOSS OF CONSCIOUSNESS [None]
  - RASH [None]
  - DIZZINESS [None]
  - EYE MOVEMENT DISORDER [None]
  - NAUSEA [None]
  - SOMNOLENCE [None]
  - TREMOR [None]
